FAERS Safety Report 9563723 (Version 1)
Quarter: 2013Q1

REPORT INFORMATION
  Report Type: Spontaneous
  Country: US (occurrence: None)
  Receive Date: 20121218
  Receipt Date: 20121218
  Transmission Date: 20140127
  Serious: Yes (Other)
  Sender: FDA-Public Use
  Company Number: PHEH2011US011041

PATIENT
  Age: 34 Year
  Sex: Female
  Weight: 78 kg

DRUGS (5)
  1. ZOMETA [Suspect]
     Indication: BREAST CANCER
     Route: 042
     Dates: start: 20111010
  2. CYTOXAN (CYCLOPHOSPHAMIDE) [Concomitant]
  3. TAXOTERE (DOCETAXEL) [Concomitant]
  4. ANASTROZOLE (ANASTROZOLE) [Concomitant]
  5. MORPHINE [Concomitant]

REACTIONS (17)
  - Weight increased [None]
  - Arthralgia [None]
  - Myalgia [None]
  - Bone pain [None]
  - Blood alkaline phosphatase decreased [None]
  - Protein total decreased [None]
  - Mean platelet volume decreased [None]
  - Mean cell haemoglobin increased [None]
  - Mean cell volume increased [None]
  - Haematocrit decreased [None]
  - Haemoglobin decreased [None]
  - Monocyte count increased [None]
  - Lymphocyte count decreased [None]
  - Lymphadenopathy [None]
  - Red blood cell count decreased [None]
  - Influenza like illness [None]
  - Pyrexia [None]
